FAERS Safety Report 14417325 (Version 1)
Quarter: 2018Q1

REPORT INFORMATION
  Report Type: Spontaneous
  Country: US (occurrence: US)
  Receive Date: 20180119
  Receipt Date: 20180119
  Transmission Date: 20180509
  Serious: Yes (Disabling)
  Sender: FDA-Public Use
  Company Number: None

PATIENT
  Age: 30 Year
  Sex: Female
  Weight: 69.4 kg

DRUGS (1)
  1. NEXPLANON [Suspect]
     Active Substance: ETONOGESTREL
     Dates: start: 20160619, end: 20171204

REACTIONS (6)
  - Hidradenitis [None]
  - Mood swings [None]
  - Anxiety [None]
  - Crying [None]
  - Anger [None]
  - Agitation [None]

NARRATIVE: CASE EVENT DATE: 20171204
